FAERS Safety Report 5345042-7 (Version None)
Quarter: 2007Q2

REPORT INFORMATION
  Report Type: 
  Country: None (occurrence: None)
  Receive Date: 20070425
  Receipt Date: 20060413
  Transmission Date: 20071010
  Serious: Yes (Disabling, Other)
  Sender: FDA-Public Use
  Company Number: WAES 0604USA02207

PATIENT
  Age: 4 Year
  Sex: Female
  Weight: 13.6079 kg

DRUGS (3)
  1. SINGULAIR [Suspect]
     Indication: ASTHMA
     Dosage: 4 MG/HS/PO
     Route: 048
     Dates: start: 20050331, end: 20060301
  2. SINGULAIR [Suspect]
     Indication: HYPERSENSITIVITY
     Dosage: 4 MG/HS/PO
     Route: 048
     Dates: start: 20050331, end: 20060301
  3. COUGH, COLD, AND FLU THERAPIES [Concomitant]

REACTIONS (1)
  - CONVULSION [None]
